FAERS Safety Report 5593594-4 (Version None)
Quarter: 2008Q1

REPORT INFORMATION
  Report Type: 
  Country: None (occurrence: None)
  Receive Date: 20080116
  Receipt Date: 20080109
  Transmission Date: 20080703
  Serious: Yes (Hospitalization)
  Sender: FDA-Public Use
  Company Number: NO-ROCHE-540781

PATIENT
  Age: 57 Year
  Sex: Female

DRUGS (3)
  1. NAPROSYN [Suspect]
     Indication: RHEUMATOID ARTHRITIS
     Dosage: DRUG REPORTED AS NAPROSYN ENTERO. FORM: ^ENTERIC TABLET^.
     Route: 048
     Dates: start: 19800101, end: 20000101
  2. NAPROSYN [Suspect]
     Route: 048
     Dates: start: 20040101, end: 20070101
  3. VIOXX [Suspect]
     Indication: RHEUMATOID ARTHRITIS
     Route: 048
     Dates: start: 20000101, end: 20041001

REACTIONS (2)
  - ILEAL ULCER [None]
  - SUBILEUS [None]
